FAERS Safety Report 13914552 (Version 1)
Quarter: 2017Q3

REPORT INFORMATION
  Report Type: Spontaneous
  Country: US (occurrence: US)
  Receive Date: 20170829
  Receipt Date: 20170829
  Transmission Date: 20171127
  Serious: No
  Sender: FDA-Public Use
  Company Number: US-JNJFOC-20170709403

PATIENT
  Age: 36 Year
  Sex: Female
  Weight: 59 kg

DRUGS (7)
  1. WARFARIN [Suspect]
     Active Substance: WARFARIN
     Indication: CEREBROVASCULAR ACCIDENT
     Route: 065
     Dates: end: 20170623
  2. WARFARIN [Suspect]
     Active Substance: WARFARIN
     Indication: CEREBROVASCULAR ACCIDENT
     Route: 065
     Dates: start: 20170707
  3. WARFARIN [Suspect]
     Active Substance: WARFARIN
     Indication: CAROTID ARTERIAL EMBOLUS
     Route: 065
     Dates: start: 20170623, end: 20170707
  4. WARFARIN [Suspect]
     Active Substance: WARFARIN
     Indication: CAROTID ARTERIAL EMBOLUS
     Route: 065
     Dates: end: 20170623
  5. WARFARIN [Suspect]
     Active Substance: WARFARIN
     Indication: CEREBROVASCULAR ACCIDENT
     Route: 065
     Dates: start: 20170623, end: 20170707
  6. REMICADE [Suspect]
     Active Substance: INFLIXIMAB
     Indication: CROHN^S DISEASE
     Route: 042
     Dates: start: 20170619
  7. WARFARIN [Suspect]
     Active Substance: WARFARIN
     Indication: CAROTID ARTERIAL EMBOLUS
     Route: 065
     Dates: start: 20170707

REACTIONS (1)
  - International normalised ratio fluctuation [Not Recovered/Not Resolved]

NARRATIVE: CASE EVENT DATE: 2017
